FAERS Safety Report 5699101-X (Version None)
Quarter: 2008Q2

REPORT INFORMATION
  Report Type: 
  Country: None (occurrence: None)
  Receive Date: 20080404
  Receipt Date: 20080404
  Transmission Date: 20081010
  Serious: Yes (Life-Threatening, Hospitalization)
  Sender: FDA-Public Use
  Company Number: None

PATIENT
  Age: 90 Year
  Sex: Female
  Weight: 68.0396 kg

DRUGS (7)
  1. CELEBREX [Suspect]
     Indication: OSTEOARTHRITIS
     Dosage: 100 MG BID PO
     Route: 048
  2. LASIX [Concomitant]
  3. DETROL [Concomitant]
  4. METOPROLOL TARTRATE [Concomitant]
  5. COUMADIN [Concomitant]
  6. POTASSIUM CHLORIDE [Concomitant]
  7. LEXAPRO [Concomitant]

REACTIONS (3)
  - ATRIAL FIBRILLATION [None]
  - CARDIAC FAILURE CONGESTIVE [None]
  - GASTROINTESTINAL HAEMORRHAGE [None]
